FAERS Safety Report 9351827 (Version 3)
Quarter: 2014Q2

REPORT INFORMATION
  Report Type: Spontaneous
  Country: US (occurrence: US)
  Receive Date: 20130617
  Receipt Date: 20140606
  Transmission Date: 20141212
  Serious: No
  Sender: FDA-Public Use
  Company Number: US-009507513-1306USA004727

PATIENT
  Sex: Male
  Weight: 76.64 kg

DRUGS (3)
  1. PROPECIA [Suspect]
     Indication: ANDROGENETIC ALOPECIA
     Dosage: 1 MG, QD
     Route: 048
     Dates: start: 20030818, end: 20120716
  2. SINGULAIR [Concomitant]
     Indication: HYPERSENSITIVITY
     Dosage: 10 MG, QD
     Route: 048
     Dates: start: 20060320
  3. NASONEX [Concomitant]
     Indication: HYPERSENSITIVITY
     Dosage: 2 SQUIRTS, EACH NOSTRIL, QD
     Route: 045
     Dates: start: 20060320

REACTIONS (7)
  - Anxiety [Not Recovered/Not Resolved]
  - Stress [Unknown]
  - Musculoskeletal pain [Unknown]
  - Nodule [Unknown]
  - Erectile dysfunction [Not Recovered/Not Resolved]
  - Sexual dysfunction [Not Recovered/Not Resolved]
  - Depression [Not Recovered/Not Resolved]
